FAERS Safety Report 18659334 (Version 1)
Quarter: 2020Q4

REPORT INFORMATION
  Report Type: Spontaneous
  Country: MX (occurrence: MX)
  Receive Date: 20201224
  Receipt Date: 20201224
  Transmission Date: 20210114
  Serious: Yes (Other)
  Sender: FDA-Public Use
  Company Number: NVSC2020MX340401

PATIENT
  Sex: Male
  Weight: 1.6 kg

DRUGS (6)
  1. URSODEOXYCHOLIC ACID [Suspect]
     Active Substance: URSODIOL
     Indication: FOETAL EXPOSURE DURING PREGNANCY
     Dosage: UNK, (MATERNAL DOSE 15 MG/ KG, QD)
     Route: 064
  2. CARBAMAZEPINE. [Suspect]
     Active Substance: CARBAMAZEPINE
     Indication: FOETAL EXPOSURE DURING PREGNANCY
     Dosage: UNK (200 MG Q12H)
     Route: 064
  3. LEVETIRACETAM. [Suspect]
     Active Substance: LEVETIRACETAM
     Indication: FOETAL EXPOSURE DURING PREGNANCY
     Dosage: UNK (MATERNAL DOSE 1G Q12H)
     Route: 064
  4. PREDNISONE. [Suspect]
     Active Substance: PREDNISONE
     Dosage: UNK, (MATERNAL DOSE 1MG/KG/DAY)
     Route: 064
  5. PREDNISONE. [Suspect]
     Active Substance: PREDNISONE
     Indication: FOETAL EXPOSURE DURING PREGNANCY
     Dosage: UNK, (MATERNAL DOSE 50 MG, QD)
     Route: 064
  6. PARACETAMOL [Suspect]
     Active Substance: ACETAMINOPHEN
     Indication: FOETAL EXPOSURE DURING PREGNANCY
     Dosage: UNK
     Route: 064

REACTIONS (4)
  - Foetal distress syndrome [Unknown]
  - Haemodynamic instability [Unknown]
  - Foetal exposure during pregnancy [Unknown]
  - Premature baby [Unknown]
